FAERS Safety Report 9032130 (Version 1)
Quarter: 2013Q1

REPORT INFORMATION
  Report Type: Spontaneous
  Country: BR (occurrence: BR)
  Receive Date: 20130122
  Receipt Date: 20130122
  Transmission Date: 20140127
  Serious: Yes (Other)
  Sender: FDA-Public Use
  Company Number: BR-AMGEN-BRACT2011066591

PATIENT
  Age: 61 Year
  Sex: Female
  Weight: 73 kg

DRUGS (15)
  1. ENBREL [Suspect]
     Indication: RHEUMATOID ARTHRITIS
     Dosage: 50 MG, ONCE WEEKLY
     Route: 058
     Dates: start: 201006, end: 201107
  2. ENBREL [Suspect]
     Dosage: 50 MG (POWDER AND SOLVENT FOR SOLUTION FOR INJECTION), WEEKLY
     Route: 058
     Dates: start: 201106, end: 201110
  3. ENBREL [Suspect]
     Dosage: 50 MG (SOLUTION FOR INJECTION IN PRE-FILLED PEN), WEEKLY
     Route: 058
     Dates: start: 201110
  4. LOSARTAN [Concomitant]
     Dosage: 4 TABLETS OF 200MG DAILY
     Dates: start: 2008
  5. LOSARTAN [Concomitant]
     Dosage: 2 TABLETS (100 MG EACH) A DAY, 2X/DAY
     Route: 048
  6. GARDENAL                           /00023201/ [Concomitant]
     Indication: CONVULSION
     Dosage: 2 TABLETS (100 MG EACH) A DAY, 2X/DAY
     Route: 048
     Dates: start: 2011
  7. GARDENAL                           /00023201/ [Concomitant]
     Dosage: 100 MG, 2X/DAY
  8. CHLOROTHIAZIDE [Concomitant]
     Dosage: 25 MG, 1X/DAY
     Dates: start: 2008
  9. CHLOROTHIAZIDE [Concomitant]
     Dosage: 0.25 MG, 1X/DAY
     Route: 048
  10. AMIODARONE HYDROCHLORIDE [Concomitant]
     Dosage: 20 MG, 1X/DAY
  11. GINKGO BILOBA [Concomitant]
     Dosage: UNK
  12. CARDIOL                            /00984501/ [Concomitant]
     Dosage: 3.125 MG, 1X/DAY
  13. CORDARONE [Concomitant]
     Dosage: 20 MG, 1X/DAY
  14. VAGMYCIN [Concomitant]
     Dosage: UNK
  15. PREDNISONE [Concomitant]
     Dosage: 2 TABLETS (100 MG EACH) A DAY, 2X/DAY

REACTIONS (14)
  - Asthenia [Unknown]
  - Vaginal discharge [Unknown]
  - Eye swelling [Unknown]
  - Secretion discharge [Unknown]
  - Alopecia [Unknown]
  - Pain [Unknown]
  - Injection site erythema [Unknown]
  - Urinary tract infection [Unknown]
  - Incorrect storage of drug [Unknown]
  - Blood pressure fluctuation [Unknown]
  - Arrhythmia [Unknown]
  - Dizziness [Unknown]
  - Onychalgia [Unknown]
  - Onychoclasis [Unknown]
